FAERS Safety Report 8826820 (Version 1)
Quarter: 2012Q4

REPORT INFORMATION
  Report Type: Report from Study
  Country: DE (occurrence: DE)
  Receive Date: 20121005
  Receipt Date: 20121005
  Transmission Date: 20130627
  Serious: Yes (Hospitalization)
  Sender: FDA-Public Use
  Company Number: DE-PFIZER INC-2012234365

PATIENT
  Age: 51 Year
  Sex: Female

DRUGS (5)
  1. IRINOTECAN HCL [Suspect]
     Indication: COLON CANCER
     Dosage: 165 mg/m2, UNK
     Route: 042
     Dates: start: 20120323
  2. LEUCOVORIN [Suspect]
     Indication: COLON CANCER
     Dosage: 200 mg/m2, UNK
     Route: 042
     Dates: start: 20120829
  3. FLUOROURACIL [Suspect]
     Indication: COLON CANCER
     Dosage: 3200 mg/m2, UNK
     Route: 042
     Dates: start: 20120323
  4. BEVACIZUMAB [Suspect]
     Indication: COLON CANCER
     Dosage: 5 mg/kg, UNK
     Route: 042
     Dates: start: 20120323
  5. OXALIPLATIN [Suspect]
     Indication: COLON CANCER
     Dosage: 85 mg/m2, UNK
     Route: 042
     Dates: start: 20120323

REACTIONS (2)
  - Pneumonia [Recovering/Resolving]
  - Pneumonitis [Recovering/Resolving]
